FAERS Safety Report 5808356-X (Version None)
Quarter: 2008Q3

REPORT INFORMATION
  Report Type: 
  Country: None (occurrence: None)
  Receive Date: 20080714
  Receipt Date: 20080630
  Transmission Date: 20090109
  Serious: Yes (Other)
  Sender: FDA-Public Use
  Company Number: PHEH2008US05796

PATIENT
  Sex: Female

DRUGS (2)
  1. RECLAST [Suspect]
     Indication: OSTEOPOROSIS
     Dosage: UNK
     Dates: start: 20080625
  2. ANTI-ASTHMATICS [Concomitant]
     Indication: ASTHMA

REACTIONS (17)
  - ABDOMINAL PAIN [None]
  - ARTHRALGIA [None]
  - ASTHENIA [None]
  - BRONCHOSPASM [None]
  - CHILLS [None]
  - CONVULSION [None]
  - DIARRHOEA [None]
  - DYSPEPSIA [None]
  - HEADACHE [None]
  - HYPNAGOGIC HALLUCINATION [None]
  - IRRITABLE BOWEL SYNDROME [None]
  - MYALGIA [None]
  - PAIN [None]
  - PYREXIA [None]
  - RENAL PAIN [None]
  - VOMITING [None]
  - WHEEZING [None]
